FAERS Safety Report 17250438 (Version 3)
Quarter: 2020Q1

REPORT INFORMATION
  Report Type: Spontaneous
  Country: DE (occurrence: DE)
  Receive Date: 20200109
  Receipt Date: 20200306
  Transmission Date: 20200409
  Serious: Yes (Other)
  Sender: FDA-Public Use
  Company Number: DE-ASTELLAS-2019US043630

PATIENT
  Age: 9 Year
  Sex: Female
  Weight: 27 kg

DRUGS (6)
  1. PROGRAF [Suspect]
     Active Substance: TACROLIMUS
     Dosage: UNK, UNKNOWN FREQ. (REDUCED DOSE)
     Route: 065
  2. PREDNISOLONE. [Suspect]
     Active Substance: PREDNISOLONE
     Indication: IMMUNOSUPPRESSION
     Dosage: UNK UNK, UNKNOWN FREQ.
     Route: 065
     Dates: end: 20191007
  3. CERTICAN [Suspect]
     Active Substance: EVEROLIMUS
     Indication: HEART TRANSPLANT
     Route: 048
  4. MYCOPHENOLATE MOFETIL. [Suspect]
     Active Substance: MYCOPHENOLATE MOFETIL
     Indication: IMMUNOSUPPRESSION
     Dosage: UNK UNK, UNKNOWN FREQ.
     Route: 065
     Dates: end: 20190905
  5. PROGRAF [Suspect]
     Active Substance: TACROLIMUS
     Indication: HEART TRANSPLANT
     Dosage: 5 MG, ONCE DAILY (2.5 MG, (2X2.5 MG))
     Route: 065
  6. CERTICAN [Suspect]
     Active Substance: EVEROLIMUS
     Dosage: UNK, UNKNOWN FREQ. (REDUCED DOSE)
     Route: 065

REACTIONS (3)
  - Myelodysplastic syndrome [Not Recovered/Not Resolved]
  - Dysplasia [Unknown]
  - Pancytopenia [Unknown]

NARRATIVE: CASE EVENT DATE: 201908
